FAERS Safety Report 5572933-4 (Version None)
Quarter: 2007Q4

REPORT INFORMATION
  Report Type: 
  Country: None (occurrence: None)
  Receive Date: 20071219
  Receipt Date: 20071219
  Transmission Date: 20080405
  Serious: No
  Sender: FDA-Public Use
  Company Number: None

PATIENT
  Age: 62 Year
  Sex: Male
  Weight: 90.7194 kg

DRUGS (5)
  1. HALOPERIDOL DECANOATE [Suspect]
     Dosage: 100MG IM Q4 WKS IM
     Route: 030
  2. ASPIRIN [Concomitant]
  3. ENALAPRIL [Concomitant]
  4. ABILIFY [Concomitant]
  5. METFORMIN [Concomitant]

REACTIONS (4)
  - COGNITIVE DISORDER [None]
  - DYSKINESIA [None]
  - EXTRAPYRAMIDAL DISORDER [None]
  - FALL [None]
